FAERS Safety Report 14924888 (Version 4)
Quarter: 2018Q4

REPORT INFORMATION
  Report Type: Spontaneous
  Country: DE (occurrence: DE)
  Receive Date: 20180522
  Receipt Date: 20181017
  Transmission Date: 20190204
  Serious: Yes (Hospitalization, Other)
  Sender: FDA-Public Use
  Company Number: DE-BRISTOL-MYERS SQUIBB COMPANY-BMS-2018-044272

PATIENT
  Age: 60 Year
  Sex: Female

DRUGS (6)
  1. PHENPROCOUMON [Suspect]
     Active Substance: PHENPROCOUMON
     Indication: VASCULAR STENT THROMBOSIS
     Dosage: UNK
     Route: 048
  2. IBUPROFEN. [Concomitant]
     Active Substance: IBUPROFEN
     Indication: PAIN
     Dosage: 600 MG, PRN
     Route: 065
  3. VALSARTAN. [Concomitant]
     Active Substance: VALSARTAN
     Indication: HYPERTENSION
     Dosage: UNK
     Route: 065
  4. ACETYLSALICYLIC ACID [Interacting]
     Active Substance: ASPIRIN
     Indication: VASCULAR STENT THROMBOSIS
     Dosage: 100 MG, QD
     Route: 065
  5. APIXABAN [Suspect]
     Active Substance: APIXABAN
     Indication: VASCULAR STENT THROMBOSIS
     Dosage: UNK
     Route: 048
  6. ATORVASTATIN [Concomitant]
     Active Substance: ATORVASTATIN
     Indication: PRODUCT USED FOR UNKNOWN INDICATION
     Dosage: UNK
     Route: 065

REACTIONS (7)
  - Sinus tachycardia [Recovered/Resolved]
  - Anaemia [Recovered/Resolved]
  - Rectal haemorrhage [Recovered/Resolved]
  - Labelled drug-drug interaction medication error [Unknown]
  - Contraindicated product administered [Unknown]
  - Product use in unapproved indication [Recovered/Resolved]
  - Asthenia [Unknown]
